FAERS Safety Report 23353792 (Version 1)
Quarter: 2024Q1

REPORT INFORMATION
  Report Type: Spontaneous
  Country: US (occurrence: US)
  Receive Date: 20240101
  Receipt Date: 20240101
  Transmission Date: 20240410
  Serious: No
  Sender: FDA-Public Use
  Company Number: US-PURDUE PHARMA-USA-2023-0305938

PATIENT
  Age: 62 Year
  Sex: Female
  Weight: 92.99 kg

DRUGS (4)
  1. OXYCODONE HYDROCHLORIDE [Suspect]
     Active Substance: OXYCODONE HYDROCHLORIDE
     Indication: Pain management
     Dosage: BID(TWICE A DAY)
     Route: 048
     Dates: start: 2015
  2. OXYCODONE HYDROCHLORIDE [Suspect]
     Active Substance: OXYCODONE HYDROCHLORIDE
     Dosage: UNK
     Route: 048
     Dates: start: 20231112, end: 20231113
  3. DRAMAMINE [Concomitant]
     Active Substance: DIMENHYDRINATE
     Indication: Nausea
     Dosage: 25 MILLIGRAM, Q12H PRN(OCCASIONALLY VERY 12 HOURS)
     Route: 065
  4. PROMETHAZINE [Concomitant]
     Active Substance: PROMETHAZINE HYDROCHLORIDE
     Indication: Nausea
     Dosage: 25 MILLIGRAM, UNK
     Route: 065

REACTIONS (3)
  - Drug interaction [Unknown]
  - Pruritus [Unknown]
  - Product colour issue [Unknown]

NARRATIVE: CASE EVENT DATE: 20231112
